FAERS Safety Report 15848730 (Version 1)
Quarter: 2019Q1

REPORT INFORMATION
  Report Type: Report from Study
  Country: CA (occurrence: CA)
  Receive Date: 20190121
  Receipt Date: 20190121
  Transmission Date: 20190417
  Serious: Yes (Other)
  Sender: FDA-Public Use
  Company Number: CA-JNJFOC-20190118097

PATIENT
  Age: 14 Year
  Sex: Male
  Weight: 82.3 kg

DRUGS (1)
  1. REMICADE [Suspect]
     Active Substance: INFLIXIMAB
     Indication: CHRONIC RECURRENT MULTIFOCAL OSTEOMYELITIS
     Dosage: STRENGTH = 100 MG
     Route: 042
     Dates: start: 20151024

REACTIONS (1)
  - Hair follicle tumour benign [Not Recovered/Not Resolved]

NARRATIVE: CASE EVENT DATE: 201810
